FAERS Safety Report 16966320 (Version 1)
Quarter: 2019Q4

REPORT INFORMATION
  Report Type: Spontaneous
  Country: US (occurrence: US)
  Receive Date: 20191028
  Receipt Date: 20191028
  Transmission Date: 20200122
  Serious: Yes (Other)
  Sender: FDA-Public Use
  Company Number: US-PFIZER INC-2019461493

PATIENT
  Age: 35 Year
  Sex: Female

DRUGS (10)
  1. OCALIVA [Suspect]
     Active Substance: OBETICHOLIC ACID
     Indication: PRIMARY BILIARY CHOLANGITIS
     Dosage: 5 MG, 1X/DAY
     Route: 048
     Dates: start: 201801
  2. HYDROXYZINE [Concomitant]
     Active Substance: HYDROXYZINE HYDROCHLORIDE
     Dosage: UNK
  3. LIDOCAINE [LIDOCAINE HYDROCHLORIDE] [Concomitant]
     Active Substance: LIDOCAINE HYDROCHLORIDE
     Dosage: UNK
  4. OCALIVA [Suspect]
     Active Substance: OBETICHOLIC ACID
     Dosage: 5 MG, 1X/DAY
     Route: 048
     Dates: start: 20180508
  5. AMITIZA [Suspect]
     Active Substance: LUBIPROSTONE
     Dosage: UNK
  6. OCALIVA [Suspect]
     Active Substance: OBETICHOLIC ACID
     Dosage: 5 MG, 1X/DAY
     Route: 048
     Dates: start: 20180509
  7. ESTRACE [Concomitant]
     Active Substance: ESTRADIOL
     Dosage: UNK
  8. DIAZEPAM. [Suspect]
     Active Substance: DIAZEPAM
     Dosage: 5 MG, 1X/DAY
     Route: 048
  9. PAROXETINE HYDROCHLORIDE. [Concomitant]
     Active Substance: PAROXETINE HYDROCHLORIDE
     Dosage: UNK
  10. TRAZODONE HYDROCHLORIDE. [Concomitant]
     Active Substance: TRAZODONE HYDROCHLORIDE
     Dosage: UNK

REACTIONS (30)
  - Hypoaesthesia [Unknown]
  - Somnolence [Unknown]
  - Fatigue [Recovering/Resolving]
  - Thyroiditis [Unknown]
  - Constipation [Unknown]
  - Incontinence [Unknown]
  - Dyskinesia [Unknown]
  - Muscular weakness [Unknown]
  - Joint swelling [Unknown]
  - Pain in extremity [Unknown]
  - Anxiety [Unknown]
  - Nausea [Unknown]
  - Abdominal pain upper [Unknown]
  - Night sweats [Unknown]
  - Menstruation irregular [Unknown]
  - Memory impairment [Unknown]
  - Dizziness [Unknown]
  - Feeling abnormal [Unknown]
  - Paraesthesia [Unknown]
  - Depressed mood [Unknown]
  - Arthralgia [Unknown]
  - Fall [Unknown]
  - Abdominal distension [Unknown]
  - Dyspepsia [Unknown]
  - Hyperthyroidism [Unknown]
  - Blood thyroid stimulating hormone decreased [Unknown]
  - Pain [Unknown]
  - Diarrhoea [Unknown]
  - Myofascial pain syndrome [Unknown]
  - Eructation [Unknown]

NARRATIVE: CASE EVENT DATE: 201811
